FAERS Safety Report 9484957 (Version 1)
Quarter: 2013Q3

REPORT INFORMATION
  Report Type: Spontaneous
  Country: US (occurrence: US)
  Receive Date: 20130828
  Receipt Date: 20130828
  Transmission Date: 20140515
  Serious: No
  Sender: FDA-Public Use
  Company Number: US-ABBOTT-13P-163-1131409-00

PATIENT
  Age: 70 Year
  Sex: Male
  Weight: 68.1 kg

DRUGS (3)
  1. ANDROGEL [Suspect]
     Indication: BLOOD TESTOSTERONE DECREASED
     Dates: start: 201304
  2. FINASTERIDE [Concomitant]
     Indication: URINARY TRACT DISORDER
  3. TAMSULOSIN [Concomitant]
     Indication: URINARY TRACT DISORDER

REACTIONS (1)
  - Blood testosterone decreased [Not Recovered/Not Resolved]
